FAERS Safety Report 22391589 (Version 1)
Quarter: 2023Q2

REPORT INFORMATION
  Report Type: Spontaneous
  Country: ES (occurrence: ES)
  Receive Date: 20230601
  Receipt Date: 20230601
  Transmission Date: 20230721
  Serious: Yes (Other)
  Sender: FDA-Public Use
  Company Number: None

PATIENT
  Sex: Female

DRUGS (1)
  1. RIVAROXABAN [Suspect]
     Active Substance: RIVAROXABAN
     Indication: Therapy change
     Dosage: 20 MG, QD
     Route: 048
     Dates: start: 20230117, end: 20230125

REACTIONS (3)
  - Coagulopathy [Unknown]
  - Anaemia [Unknown]
  - Product substitution error [Unknown]

NARRATIVE: CASE EVENT DATE: 20230125
